FAERS Safety Report 19039672 (Version 1)
Quarter: 2021Q1

REPORT INFORMATION
  Report Type: Spontaneous
  Country: JP (occurrence: JP)
  Receive Date: 20210322
  Receipt Date: 20210322
  Transmission Date: 20210420
  Serious: Yes (Other)
  Sender: FDA-Public Use
  Company Number: JP-JNJFOC-20210339080

PATIENT
  Age: 39 Year
  Sex: Female

DRUGS (4)
  1. YONDELIS [Suspect]
     Active Substance: TRABECTEDIN
     Route: 041
  2. URSODEOXYCHOLIC ACID [Concomitant]
     Active Substance: URSODIOL
     Route: 065
     Dates: start: 20210120
  3. YONDELIS [Suspect]
     Active Substance: TRABECTEDIN
     Indication: SYNOVIAL SARCOMA METASTATIC
     Dosage: 24 HOUR INFUSION
     Route: 041
     Dates: start: 20210120
  4. NEOPHAGEN C [Suspect]
     Active Substance: AMMONIUM GLYCYRRHIZATE
     Indication: PRODUCT USED FOR UNKNOWN INDICATION
     Route: 065
     Dates: start: 20210120

REACTIONS (3)
  - Nausea [Unknown]
  - White blood cell count decreased [Unknown]
  - Aspartate aminotransferase increased [Unknown]

NARRATIVE: CASE EVENT DATE: 20210120
